FAERS Safety Report 25340673 (Version 1)
Quarter: 2025Q2

REPORT INFORMATION
  Report Type: Spontaneous
  Country: US (occurrence: US)
  Receive Date: 20250521
  Receipt Date: 20250521
  Transmission Date: 20250717
  Serious: No
  Sender: ROCHE
  Company Number: US-ROCHE-10000284655

PATIENT
  Sex: Female

DRUGS (27)
  1. XOLAIR [Suspect]
     Active Substance: OMALIZUMAB
     Indication: Rheumatoid arthritis
     Route: 058
  2. VITAMIN C [Concomitant]
     Active Substance: ASCORBIC ACID
  3. MAGNESIUM [Concomitant]
     Active Substance: MAGNESIUM
  4. POTASSIUM [Concomitant]
     Active Substance: POTASSIUM
  5. VITAMIN D [Concomitant]
     Active Substance: VITAMIN D NOS
  6. ZINC [Concomitant]
     Active Substance: ZINC
  7. BACLOFEN [Concomitant]
     Active Substance: BACLOFEN
  8. CYCLOBENZAPRINE [Concomitant]
     Active Substance: CYCLOBENZAPRINE
  9. XANAX [Concomitant]
     Active Substance: ALPRAZOLAM
  10. ALBUTEROL [Concomitant]
     Active Substance: ALBUTEROL
  11. DOCUSATE [Concomitant]
     Active Substance: DOCUSATE
  12. FLUTICASONE [Concomitant]
     Active Substance: FLUTICASONE
  13. GABAPENTIN [Concomitant]
     Active Substance: GABAPENTIN
  14. IBUPROFEN [Concomitant]
     Active Substance: IBUPROFEN
  15. LASTACAFT [Concomitant]
     Active Substance: ALCAFTADINE
  16. LEVOTHYROXINE [Concomitant]
     Active Substance: LEVOTHYROXINE
  17. LIDOCAINE [Concomitant]
     Active Substance: LIDOCAINE
  18. LISINOPRIL [Concomitant]
     Active Substance: LISINOPRIL
  19. METHYLPHENIDATE [Concomitant]
     Active Substance: METHYLPHENIDATE
  20. PATANASE [Concomitant]
     Active Substance: OLOPATADINE HYDROCHLORIDE
  21. PRILOSEC [Concomitant]
     Active Substance: OMEPRAZOLE MAGNESIUM
  22. SYMBICORT [Concomitant]
     Active Substance: BUDESONIDE\FORMOTEROL FUMARATE DIHYDRATE
  23. TYLENOL [Concomitant]
     Active Substance: ACETAMINOPHEN
  24. VALIUM [Concomitant]
     Active Substance: DIAZEPAM
  25. VENTOLIN [Concomitant]
     Active Substance: ALBUTEROL SULFATE
  26. ZYRTEC ALLER [Concomitant]
  27. SINGULAIR CHE 4MG [Concomitant]

REACTIONS (2)
  - Injection site pain [Unknown]
  - Off label use [Unknown]
